FAERS Safety Report 10154943 (Version 1)
Quarter: 2014Q2

REPORT INFORMATION
  Report Type: Spontaneous
  Country: US (occurrence: US)
  Receive Date: 20140506
  Receipt Date: 20140506
  Transmission Date: 20141212
  Serious: No
  Sender: FDA-Public Use
  Company Number: US-PFIZER INC-2014122246

PATIENT
  Age: 73 Year
  Sex: Female
  Weight: 99.77 kg

DRUGS (6)
  1. NEURONTIN [Suspect]
     Indication: NEUROPATHY PERIPHERAL
     Dosage: UNK
     Route: 048
     Dates: start: 2013
  2. NEURONTIN [Suspect]
     Dosage: 300 MG, (ONE CAPSULE OF 100MG IN THE MORNING AND TWO CAPSULES OF 100MG AT NIGHT)
  3. ROPINIROLE [Concomitant]
     Indication: RESTLESS LEGS SYNDROME
     Dosage: 3 MG, 1X/DAY
  4. ALLOPURINOL [Concomitant]
     Indication: GOUT
     Dosage: 25 MG, 2X/DAY
  5. ATENOLOL [Concomitant]
     Indication: HYPERTENSION
     Dosage: 25 MG, 1X/DAY
  6. LYRICA [Concomitant]
     Indication: NEUROPATHY PERIPHERAL
     Dosage: 150 MG, 2X/DAY
     Route: 048

REACTIONS (1)
  - Drug ineffective [Unknown]
